FAERS Safety Report 16882710 (Version 3)
Quarter: 2020Q1

REPORT INFORMATION
  Report Type: Report from Study
  Country: None (occurrence: US)
  Receive Date: 20191003
  Receipt Date: 20200108
  Transmission Date: 20200409
  Serious: Yes (Other)
  Sender: FDA-Public Use
  Company Number: US-ABBVIE-19K-163-2944870-00

PATIENT
  Age: 76 Year
  Sex: Female

DRUGS (5)
  1. HUMIRA [Suspect]
     Active Substance: ADALIMUMAB
     Indication: CROHN^S DISEASE
     Dosage: CITRATE FREE (CF)
     Route: 058
  2. FOLIC ACID. [Concomitant]
     Active Substance: FOLIC ACID
     Indication: PRODUCT USED FOR UNKNOWN INDICATION
  3. VITAMIN D [Concomitant]
     Active Substance: VITAMIN D NOS
     Indication: PRODUCT USED FOR UNKNOWN INDICATION
     Dates: end: 2019
  4. VITAMIN B12 [Concomitant]
     Active Substance: CYANOCOBALAMIN
     Indication: PRODUCT USED FOR UNKNOWN INDICATION
     Dosage: 1000 M
  5. CYANOCOBALAMIN. [Concomitant]
     Active Substance: CYANOCOBALAMIN
     Indication: PRODUCT USED FOR UNKNOWN INDICATION
     Dosage: 1000 M
     Dates: end: 2019

REACTIONS (15)
  - Dehydration [Unknown]
  - Dysphonia [Unknown]
  - Gastric infection [Unknown]
  - Faecal calprotectin abnormal [Not Recovered/Not Resolved]
  - Dyspnoea [Unknown]
  - Dysphagia [Recovering/Resolving]
  - Malaise [Recovering/Resolving]
  - Iron deficiency anaemia [Not Recovered/Not Resolved]
  - Pharyngeal swelling [Unknown]
  - Skin wrinkling [Unknown]
  - Memory impairment [Unknown]
  - Pain in extremity [Recovering/Resolving]
  - Malaise [Unknown]
  - Blood test abnormal [Unknown]
  - Diarrhoea [Recovering/Resolving]

NARRATIVE: CASE EVENT DATE: 201910
